FAERS Safety Report 12080882 (Version 1)
Quarter: 2016Q1

REPORT INFORMATION
  Report Type: Spontaneous
  Country: US (occurrence: US)
  Receive Date: 20160216
  Receipt Date: 20160216
  Transmission Date: 20160526
  Serious: Yes (Death, Other)
  Sender: FDA-Public Use
  Company Number: US-GILEAD-2016-0197541

PATIENT
  Age: 94 Year
  Sex: Female

DRUGS (3)
  1. RANEXA [Suspect]
     Active Substance: RANOLAZINE
     Indication: CHEST PAIN
     Dosage: 500 MG, BID
     Route: 065
     Dates: start: 201012
  2. RANITIDINE [Concomitant]
     Active Substance: RANITIDINE\RANITIDINE HYDROCHLORIDE
     Dosage: 3 MG, BID
  3. QUINIDINE [Concomitant]
     Active Substance: QUINIDINE
     Dosage: UNK, TID

REACTIONS (12)
  - Death [Fatal]
  - Heart rate decreased [Unknown]
  - Haemorrhagic stroke [Unknown]
  - Pneumonia [Unknown]
  - Dehydration [Unknown]
  - Blood sodium decreased [Unknown]
  - Cardiac disorder [Unknown]
  - Blood pressure fluctuation [Unknown]
  - Headache [Unknown]
  - Renal impairment [Unknown]
  - Hypertension [Unknown]
  - Nephropathy [Unknown]

NARRATIVE: CASE EVENT DATE: 201511
